FAERS Safety Report 6756114-4 (Version None)
Quarter: 2010Q2

REPORT INFORMATION
  Report Type: 
  Country: None (occurrence: None)
  Receive Date: 20100604
  Receipt Date: 20100526
  Transmission Date: 20101027
  Serious: Yes (Hospitalization)
  Sender: FDA-Public Use
  Company Number: ES-PFIZER INC-2010068061

PATIENT
  Age: 28 Month
  Sex: Male

DRUGS (1)
  1. ATARAX [Suspect]
     Indication: ANAPHYLACTIC REACTION
     Dosage: UNK
     Dates: start: 20100501, end: 20100501

REACTIONS (2)
  - ANAPHYLACTIC REACTION [None]
  - VOMITING [None]
